FAERS Safety Report 21895106 (Version 1)
Quarter: 2023Q1

REPORT INFORMATION
  Report Type: Spontaneous
  Country: US (occurrence: US)
  Receive Date: 20230122
  Receipt Date: 20230122
  Transmission Date: 20230417
  Serious: Yes (Other)
  Sender: FDA-Public Use
  Company Number: US-SUN PHARMACEUTICAL INDUSTRIES LTD-2023R1-373861

PATIENT
  Age: 14 Year
  Sex: Female

DRUGS (1)
  1. SERTRALINE [Interacting]
     Active Substance: SERTRALINE HYDROCHLORIDE
     Indication: Product used for unknown indication
     Dosage: 2000 MILLIGRAM
     Route: 048

REACTIONS (7)
  - Cross sensitivity reaction [Unknown]
  - Diarrhoea [Unknown]
  - Intentional overdose [Unknown]
  - Somnolence [Unknown]
  - Tachycardia [Unknown]
  - Tremor [Unknown]
  - Vomiting [Unknown]
